FAERS Safety Report 10060674 (Version 3)
Quarter: 2014Q3

REPORT INFORMATION
  Report Type: Spontaneous
  Country: GB (occurrence: GB)
  Receive Date: 20140404
  Receipt Date: 20140707
  Transmission Date: 20150326
  Serious: Yes (Hospitalization, Other)
  Sender: FDA-Public Use
  Company Number: PHFR2014GB002616

PATIENT
  Sex: Male

DRUGS (1)
  1. CLOZARIL [Suspect]
     Active Substance: CLOZAPINE
     Dosage: UNK
     Route: 048
     Dates: start: 20140403

REACTIONS (4)
  - Coma [Unknown]
  - Catatonia [Recovered/Resolved]
  - Diabetes mellitus [Recovering/Resolving]
  - Pneumonia [Recovered/Resolved]
